FAERS Safety Report 9377342 (Version 6)
Quarter: 2013Q4

REPORT INFORMATION
  Report Type: Report from Study
  Country: DE (occurrence: DE)
  Receive Date: 20130701
  Receipt Date: 20131213
  Transmission Date: 20140711
  Serious: Yes (Life-Threatening, Hospitalization, Disabling, Other)
  Sender: FDA-Public Use
  Company Number: PHHO2013DE008633

PATIENT
  Sex: 0

DRUGS (6)
  1. AMN107 [Suspect]
     Indication: ACUTE LYMPHOCYTIC LEUKAEMIA
     Dosage: 400 MG, BID
     Route: 048
     Dates: start: 20130314, end: 20130331
  2. AMN107 [Suspect]
     Dosage: 600 MG, QD (200-400)
     Route: 048
     Dates: start: 20130402
  3. CYTARABINE [Suspect]
     Dosage: 1000 MG/M2, UNK
     Dates: start: 20130925
  4. ACYCLOVIR [Concomitant]
     Indication: PROPHYLAXIS
     Dosage: 400 MG, Q6H
  5. COTRIMOXAZOLE [Concomitant]
     Indication: PROPHYLAXIS
     Dosage: 160/800MG (2 WEEKS)
  6. PANTOZOL [Concomitant]
     Indication: PROPHYLAXIS
     Dosage: 80 MG, QD

REACTIONS (5)
  - Pancytopenia [Recovered/Resolved]
  - Erysipelas [Recovered/Resolved]
  - Cellulitis [Recovered/Resolved]
  - Tonsillitis [Recovered/Resolved]
  - Thrombocytopenia [Recovered/Resolved]
